FAERS Safety Report 5145463-1 (Version None)
Quarter: 2006Q4

REPORT INFORMATION
  Report Type: 
  Country: None (occurrence: None)
  Receive Date: 20061025
  Receipt Date: 20061011
  Transmission Date: 20070319
  Serious: Yes (Hospitalization)
  Sender: FDA-Public Use
  Company Number: WSDF_00581

PATIENT
  Age: 48 Year
  Sex: Female
  Weight: 71.6683 kg

DRUGS (3)
  1. WINRHO SDF [Suspect]
     Indication: THROMBOCYTOPENIC PURPURA
     Dosage: 71.23 UG/KG ONCE IV
     Route: 042
     Dates: start: 20060928, end: 20060928
  2. WINRHO SDF [Suspect]
     Indication: THROMBOCYTOPENIC PURPURA
  3. WARFARIN SODIUM [Concomitant]

REACTIONS (7)
  - ABDOMINAL PAIN [None]
  - ASPARTATE AMINOTRANSFERASE INCREASED [None]
  - BLOOD BILIRUBIN INCREASED [None]
  - CHROMATURIA [None]
  - HAEMOGLOBIN DECREASED [None]
  - HAEMOGLOBINURIA [None]
  - HAEMOLYSIS [None]
